FAERS Safety Report 6394242-6 (Version None)
Quarter: 2010Q1

REPORT INFORMATION
  Report Type: 
  Country: None (occurrence: None)
  Receive Date: 20091006
  Receipt Date: 20090929
  Transmission Date: 20100710
  Serious: Yes (Other)
  Sender: FDA-Public Use
  Company Number: WAES  0909USA00484

PATIENT
  Age: 86 Year
  Sex: Female

DRUGS (5)
  1. FOSAMAX [Suspect]
     Indication: OSTEOPOROSIS
     Dosage: 35 MG WKY PO
     Route: 048
     Dates: start: 20070308, end: 20080617
  2. PEON (ZALTOPROFEN) [Suspect]
     Indication: LUMBAR SPINAL STENOSIS
     Dosage: 80 MG TID PO
     Route: 048
     Dates: start: 20070306, end: 20080603
  3. MECOBALAMIN [Suspect]
     Indication: LUMBAR SPINAL STENOSIS
     Dosage: 1500 MICROGM TID PO
     Route: 048
     Dates: start: 20070306, end: 20080603
  4. OPALMON (LIMAPROST) [Suspect]
     Indication: LUMBAR SPINAL STENOSIS
     Dosage: 5 MICROGM TID PO
     Route: 048
     Dates: start: 20070306, end: 20080603
  5. ALFAROL (ALFACALCIDOL) [Suspect]
     Indication: OSTEOPOROSIS
     Dosage: 1 MICROGRAM DAILY PO
     Route: 048
     Dates: start: 20070306, end: 20080603

REACTIONS (1)
  - RENAL IMPAIRMENT [None]
